FAERS Safety Report 23074105 (Version 3)
Quarter: 2023Q4

REPORT INFORMATION
  Report Type: Report from Study
  Country: MX (occurrence: MX)
  Receive Date: 20231017
  Receipt Date: 20231219
  Transmission Date: 20240110
  Serious: Yes (Other)
  Sender: FDA-Public Use
  Company Number: MX-002147023-NVSC2023MX026115

PATIENT
  Age: 35 Year
  Sex: Male
  Weight: 71 kg

DRUGS (5)
  1. OFATUMUMAB [Suspect]
     Active Substance: OFATUMUMAB
     Indication: Multiple sclerosis
     Dosage: 20 MG
     Route: 058
     Dates: start: 20221223
  2. OFATUMUMAB [Suspect]
     Active Substance: OFATUMUMAB
     Dosage: UNK
     Route: 065
     Dates: start: 20230105
  3. OFATUMUMAB [Suspect]
     Active Substance: OFATUMUMAB
     Dosage: UNK
     Route: 065
     Dates: start: 20230518
  4. LEVOTHYROXINE SODIUM [Concomitant]
     Active Substance: LEVOTHYROXINE SODIUM
     Indication: Thyroid disorder
     Dosage: 50 UG (1 OF 50 MCG)
     Route: 048
     Dates: start: 2017
  5. LEVOTHYROXINE [Concomitant]
     Active Substance: LEVOTHYROXINE
     Indication: Thyroid disorder
     Dosage: 50 UG (1 OF 50 MCG)
     Route: 048
     Dates: start: 2017

REACTIONS (10)
  - Hemiparesis [Recovered/Resolved]
  - Weight increased [Not Recovered/Not Resolved]
  - Body height decreased [Unknown]
  - Mood swings [Unknown]
  - Skin discolouration [Unknown]
  - Anxiety [Recovered/Resolved]
  - Pigmentation disorder [Recovered/Resolved]
  - Stress [Recovered/Resolved]
  - Inappropriate schedule of product administration [Unknown]
  - Paternal exposure during pregnancy [Unknown]

NARRATIVE: CASE EVENT DATE: 20230105
